FAERS Safety Report 9490960 (Version 2)
Quarter: 2014Q2

REPORT INFORMATION
  Report Type: Spontaneous
  Country: US (occurrence: US)
  Receive Date: 20130830
  Receipt Date: 20140501
  Transmission Date: 20141212
  Serious: Yes (Hospitalization)
  Sender: FDA-Public Use
  Company Number: US-BAYER-2013-105008

PATIENT
  Age: 29 Year
  Sex: Female
  Weight: 95.24 kg

DRUGS (5)
  1. MIRENA [Suspect]
     Indication: CONTRACEPTION
     Dosage: 20 MCG/24HR, CONT
     Route: 015
     Dates: start: 20090413, end: 20101203
  2. SEROQUEL [Concomitant]
     Indication: BIPOLAR DISORDER
     Dosage: UNK
     Dates: start: 1995
  3. DIVALPROEX SODIUM [Concomitant]
     Indication: BIPOLAR DISORDER
     Dosage: UNK
     Dates: start: 1995
  4. AMLODIPINE [Concomitant]
     Dosage: UNK
     Dates: start: 2007
  5. LISINOPRIL [Concomitant]
     Dosage: UNK
     Dates: start: 2007

REACTIONS (7)
  - Uterine perforation [None]
  - Abdominal pain lower [None]
  - Nausea [None]
  - Vomiting [None]
  - Injury [None]
  - Medical device pain [None]
  - Infection [None]
